FAERS Safety Report 19846298 (Version 5)
Quarter: 2022Q2

REPORT INFORMATION
  Report Type: Report from Study
  Country: US (occurrence: US)
  Receive Date: 20210916
  Receipt Date: 20220531
  Transmission Date: 20220721
  Serious: Yes (Disabling, Other)
  Sender: FDA-Public Use
  Company Number: US-SANOFI-00632694

PATIENT
  Age: 65 Year
  Sex: Female

DRUGS (3)
  1. TERIFLUNOMIDE [Suspect]
     Active Substance: TERIFLUNOMIDE
     Indication: Multiple sclerosis
     Dosage: 14 MG, QD
     Route: 048
     Dates: start: 20170720
  2. COVID-19 VACCINE [Concomitant]
  3. INFLUENZA VIRUS VACCINE [Concomitant]
     Active Substance: INFLUENZA VIRUS VACCINE

REACTIONS (15)
  - Atrophy [Not Recovered/Not Resolved]
  - Cataract [Not Recovered/Not Resolved]
  - Retinal oedema [Unknown]
  - Insomnia [Not Recovered/Not Resolved]
  - Fatigue [Not Recovered/Not Resolved]
  - Pruritus [Not Recovered/Not Resolved]
  - Wheezing [Unknown]
  - Disturbance in attention [Unknown]
  - Inflammation [Not Recovered/Not Resolved]
  - Retinal scar [Not Recovered/Not Resolved]
  - Alopecia [Not Recovered/Not Resolved]
  - Diarrhoea [Not Recovered/Not Resolved]
  - Tooth extraction [Not Recovered/Not Resolved]
  - Cataract operation [Not Recovered/Not Resolved]
  - Intraocular lens implant [Not Recovered/Not Resolved]

NARRATIVE: CASE EVENT DATE: 20211101
